FAERS Safety Report 14326775 (Version 1)
Quarter: 2017Q4

REPORT INFORMATION
  Report Type: Spontaneous
  Country: US (occurrence: US)
  Receive Date: 20171222
  Receipt Date: 20171222
  Transmission Date: 20180321
  Serious: Yes (Other)
  Sender: FDA-Public Use
  Company Number: None

PATIENT

DRUGS (1)
  1. CEFTRIAXONE. [Suspect]
     Active Substance: CEFTRIAXONE
     Indication: INFECTION
     Route: 040
     Dates: start: 20171216, end: 20171218

REACTIONS (2)
  - Product compounding quality issue [None]
  - Product deposit [None]

NARRATIVE: CASE EVENT DATE: 20171218
